FAERS Safety Report 8165633-8 (Version None)
Quarter: 2012Q1

REPORT INFORMATION
  Report Type: 
  Country: None (occurrence: None)
  Receive Date: 20120223
  Receipt Date: 20120223
  Transmission Date: 20120608
  Serious: Yes (Other)
  Sender: FDA-Public Use
  Company Number: None

PATIENT
  Age: 43 Year
  Sex: Female
  Weight: 69.4003 kg

DRUGS (1)
  1. CIPROFLOXACIN [Suspect]
     Indication: KIDNEY INFECTION
     Dosage: 500 MG 2 X DAY ORAL
     Route: 048
     Dates: start: 20120113, end: 20120118

REACTIONS (6)
  - EXTRASYSTOLES [None]
  - HEADACHE [None]
  - CARDIAC FLUTTER [None]
  - DIZZINESS [None]
  - TENDON PAIN [None]
  - NAUSEA [None]
